FAERS Safety Report 18650227 (Version 7)
Quarter: 2021Q1

REPORT INFORMATION
  Report Type: Report from Study
  Country: US (occurrence: US)
  Receive Date: 20201222
  Receipt Date: 20210325
  Transmission Date: 20210419
  Serious: No
  Sender: FDA-Public Use
  Company Number: NVSC2020US337695

PATIENT
  Sex: Female

DRUGS (2)
  1. BEOVU [Suspect]
     Active Substance: BROLUCIZUMAB-DBLL
     Indication: NEOVASCULAR AGE-RELATED MACULAR DEGENERATION
     Dosage: UNK
     Route: 047
     Dates: start: 20201211
  2. BEOVU [Suspect]
     Active Substance: BROLUCIZUMAB-DBLL
     Dosage: UNK
     Route: 047

REACTIONS (9)
  - Nasopharyngitis [Unknown]
  - Hypertension [Not Recovered/Not Resolved]
  - Vision blurred [Unknown]
  - Eye disorder [Not Recovered/Not Resolved]
  - Metamorphopsia [Recovered/Resolved]
  - Cough [Unknown]
  - Eye pruritus [Not Recovered/Not Resolved]
  - Feeling abnormal [Not Recovered/Not Resolved]
  - Vitreous floaters [Recovered/Resolved]
